FAERS Safety Report 7280917-3 (Version None)
Quarter: 2011Q1

REPORT INFORMATION
  Report Type: 
  Country: None (occurrence: None)
  Receive Date: 20110203
  Receipt Date: 20110203
  Transmission Date: 20110831
  Serious: Yes (Disabling)
  Sender: FDA-Public Use
  Company Number: None

PATIENT
  Age: 59 Year
  Sex: Female
  Weight: 99.3377 kg

DRUGS (1)
  1. PROVASTATIN DONT HAVE WITH ME AT THE MOMENT DONT HAVE WITH ME AT THE M [Suspect]
     Indication: BLOOD CHOLESTEROL INCREASED
     Dosage: ONCE A DAY ONCE A DAY PO
     Route: 048
     Dates: start: 20100414, end: 20110122

REACTIONS (5)
  - DYSPNOEA [None]
  - FATIGUE [None]
  - PRURITUS [None]
  - MUSCULOSKELETAL STIFFNESS [None]
  - DIVERTICULITIS [None]
